FAERS Safety Report 7263208-6 (Version None)
Quarter: 2011Q1

REPORT INFORMATION
  Report Type: 
  Country: None (occurrence: None)
  Receive Date: 20110130
  Receipt Date: 20101012
  Transmission Date: 20110831
  Serious: No
  Sender: FDA-Public Use
  Company Number: US-ABBOTT-10P-163-0678001-00

PATIENT
  Sex: Female
  Weight: 105.33 kg

DRUGS (14)
  1. AMBIEN [Concomitant]
     Indication: INSOMNIA
  2. ALLEGRA [Concomitant]
     Indication: SEASONAL ALLERGY
  3. LOMOTIL [Concomitant]
     Indication: GASTROINTESTINAL DISORDER
  4. METFORMIN [Concomitant]
     Indication: DIABETES MELLITUS
  5. PROZAC [Concomitant]
     Indication: NERVOUSNESS
  6. NAPROXEN [Concomitant]
     Indication: PRODUCT USED FOR UNKNOWN INDICATION
  7. HUMIRA [Suspect]
     Indication: RHEUMATOID ARTHRITIS
     Dates: start: 20040101, end: 20100801
  8. VALIUM [Concomitant]
     Indication: MUSCLE SPASMS
  9. ABILIFY [Concomitant]
     Indication: POST-TRAUMATIC STRESS DISORDER
  10. GABAPENTIN [Concomitant]
     Indication: NEUROPATHY PERIPHERAL
     Dosage: 2X/ DAY AND 2 AT BED TIME
  11. HUMIRA [Suspect]
     Dates: start: 20100801
  12. BENICAR [Concomitant]
     Indication: BLOOD PRESSURE
  13. PREVACID [Concomitant]
     Indication: GASTROOESOPHAGEAL REFLUX DISEASE
  14. SOMA [Concomitant]
     Indication: MUSCLE RELAXANT THERAPY
     Route: 048

REACTIONS (3)
  - RHEUMATOID ARTHRITIS [None]
  - MUSCULAR WEAKNESS [None]
  - JOINT RANGE OF MOTION DECREASED [None]
